FAERS Safety Report 25975716 (Version 2)
Quarter: 2025Q4

REPORT INFORMATION
  Report Type: Report from Study
  Country: BR (occurrence: BR)
  Receive Date: 20251029
  Receipt Date: 20251211
  Transmission Date: 20260118
  Serious: Yes (Other)
  Sender: NOVO NORDISK
  Company Number: BR-NOVOPROD-1534474

PATIENT
  Age: 64 Year
  Sex: Male
  Weight: 87 kg

DRUGS (5)
  1. METFORMIN HYDROCHLORIDE [Concomitant]
     Active Substance: METFORMIN HYDROCHLORIDE
     Dosage: 500 MG, BID
  2. REPAGLINIDE [Concomitant]
     Active Substance: REPAGLINIDE
     Dosage: 5 MG
  3. PLENANCE EZE [Concomitant]
     Dosage: UNK
  4. FIASP [Suspect]
     Active Substance: INSULIN ASPART
     Indication: Diabetes mellitus
     Dosage: 3 IU, TID
  5. TRESIBA [Suspect]
     Active Substance: INSULIN DEGLUDEC
     Indication: Diabetes mellitus
     Dosage: 19 IU, QD

REACTIONS (7)
  - Device failure [Unknown]
  - Device issue [Unknown]
  - Fear of death [Unknown]
  - Blood glucose increased [Recovered/Resolved]
  - Blood glucose increased [Not Recovered/Not Resolved]
  - Device physical property issue [Unknown]
  - Wrong technique in device usage process [Unknown]

NARRATIVE: CASE EVENT DATE: 20250928
